FAERS Safety Report 4368071-9 (Version None)
Quarter: 2004Q2

REPORT INFORMATION
  Report Type: 
  Country: None (occurrence: None)
  Receive Date: 20040602
  Receipt Date: 20040526
  Transmission Date: 20050107
  Serious: Yes (Other)
  Sender: FDA-Public Use
  Company Number: 200415514GDDC

PATIENT
  Age: 22 Year
  Sex: Female
  Weight: 103.4 kg

DRUGS (8)
  1. GAVISCON [Suspect]
     Indication: GASTROOESOPHAGEAL REFLUX DISEASE
     Dosage: DOSE: EXTRA STRENGTH LIQUID
     Route: 048
     Dates: start: 19920101
  2. METHYLCELLULOSE [Suspect]
     Dosage: DOSE: UNK
     Route: 048
  3. RANITIDINE HYDROCHLORIDE [Concomitant]
     Dosage: DOSE: UNK
  4. OMEPRAZOLE [Concomitant]
     Dosage: DOSE: UNK
  5. SUCRALFATE [Concomitant]
     Dosage: DOSE: UNK
  6. IMIPRAMINE [Concomitant]
     Dosage: DOSE: UNK
  7. SERTRALINE HYDROCHLORIDE [Concomitant]
     Dosage: DOSE: UNK
  8. TPN [Concomitant]
     Dosage: DOSE: UNK

REACTIONS (4)
  - ANAPHYLACTIC REACTION [None]
  - CONDITION AGGRAVATED [None]
  - GASTROOESOPHAGEAL REFLUX DISEASE [None]
  - OESOPHAGITIS [None]
